FAERS Safety Report 21785735 (Version 1)
Quarter: 2022Q4

REPORT INFORMATION
  Report Type: Other
  Country: US (occurrence: None)
  Receive Date: 20221227
  Receipt Date: 20221227
  Transmission Date: 20230112
  Serious: Yes (Death)
  Sender: FDA-Public Use
  Company Number: US-ROCHE-3198413

PATIENT
  Age: 49 Year
  Sex: Female

DRUGS (1)
  1. RITUXAN [Suspect]
     Active Substance: RITUXIMAB
     Indication: Optic neuritis
     Dosage: WEEK 0 AND WEEK 2 THEN REPEAT EVERY 6 MONTH
     Route: 041

REACTIONS (2)
  - COVID-19 [Fatal]
  - Off label use [Unknown]
